FAERS Safety Report 8381036-5 (Version None)
Quarter: 2012Q2

REPORT INFORMATION
  Report Type: 
  Country: None (occurrence: None)
  Receive Date: 20120522
  Receipt Date: 20111014
  Transmission Date: 20120825
  Serious: No
  Sender: FDA-Public Use
  Company Number: 2011-09999

PATIENT
  Age: 43 Year
  Sex: Female

DRUGS (1)
  1. THERACYS [Suspect]
     Indication: ACCIDENTAL EXPOSURE
     Dosage: OTH.
     Route: 050
     Dates: start: 20111013, end: 20111013

REACTIONS (3)
  - EYE DISORDER [None]
  - EXCORIATION [None]
  - ACCIDENTAL EXPOSURE [None]
